FAERS Safety Report 9050452 (Version 2)
Quarter: 2013Q1

REPORT INFORMATION
  Report Type: Spontaneous
  Country: US (occurrence: US)
  Receive Date: 20130205
  Receipt Date: 20130318
  Transmission Date: 20140127
  Serious: Yes (Hospitalization, Other)
  Sender: FDA-Public Use
  Company Number: US-ACTELION-A-US2013-78450

PATIENT
  Age: 88 Year
  Sex: Female

DRUGS (12)
  1. TRACLEER [Suspect]
     Indication: PULMONARY ARTERIAL HYPERTENSION
     Dosage: 125 MG, BID
     Route: 048
     Dates: start: 201210
  2. COUMADIN [Concomitant]
  3. COZAAR [Concomitant]
  4. DIGOXIN [Concomitant]
  5. LASIX [Concomitant]
  6. POTASSIUM [Concomitant]
  7. ATENOLOL [Concomitant]
  8. OMEPRAZOLE [Concomitant]
  9. AMITRIPTYLINE [Concomitant]
  10. B12 [Concomitant]
  11. PRESERVISION EYE VITAMIN AND MINERAL SUPPL. [Concomitant]
  12. ACETAMINOPHEN [Concomitant]

REACTIONS (1)
  - Myocardial infarction [Recovering/Resolving]
